APPROVED DRUG PRODUCT: DUAC
Active Ingredient: BENZOYL PEROXIDE; CLINDAMYCIN PHOSPHATE
Strength: 5%;1.2%
Dosage Form/Route: GEL;TOPICAL
Application: N050741 | Product #001 | TE Code: AB
Applicant: STIEFEL LABORATORIES INC
Approved: Aug 26, 2002 | RLD: Yes | RS: No | Type: RX